FAERS Safety Report 7464259-9 (Version None)
Quarter: 2011Q2

REPORT INFORMATION
  Report Type: 
  Country: None (occurrence: None)
  Receive Date: 20110508
  Receipt Date: 20110425
  Transmission Date: 20111010
  Serious: No
  Sender: FDA-Public Use
  Company Number: US-ROXANE LABORATORIES, INC.-2011-RO-00381RO

PATIENT
  Sex: Male
  Weight: 87 kg

DRUGS (9)
  1. HYDROCHLOROTHIAZIDE [Concomitant]
     Indication: HYPERTENSION
     Dosage: 12.5 MG
     Dates: start: 20100101
  2. TEGRETOL [Concomitant]
     Indication: PARTIAL SEIZURES
     Dosage: 600 MG
  3. FLUTICASONE PROPIONATE [Suspect]
     Indication: COUGH
  4. KEPPRA [Concomitant]
     Indication: PARTIAL SEIZURES
     Dosage: 2000 MG
  5. LISINOPRIL [Concomitant]
     Indication: HYPERTENSION
     Dosage: 30 MG
     Dates: start: 20100101
  6. FLUTICASONE PROPIONATE [Suspect]
     Indication: NASOPHARYNGITIS
     Route: 045
     Dates: start: 20110310, end: 20110313
  7. AMLODIPINE BESYLATE [Concomitant]
     Indication: HYPERTENSION
     Dosage: 5 MG
     Dates: start: 20100101
  8. FLUTICASONE PROPIONATE [Suspect]
     Indication: NASAL CONGESTION
  9. KLONOPIN [Concomitant]
     Indication: TREMOR

REACTIONS (2)
  - AGEUSIA [None]
  - ANOSMIA [None]
